FAERS Safety Report 10228565 (Version 4)
Quarter: 2015Q2

REPORT INFORMATION
  Report Type: Spontaneous
  Country: US (occurrence: US)
  Receive Date: 20140610
  Receipt Date: 20150415
  Transmission Date: 20150821
  Serious: Yes (Hospitalization)
  Sender: FDA-Public Use
  Company Number: US-BAYER-2014-085491

PATIENT
  Age: 23 Year
  Sex: Female
  Weight: 57 kg

DRUGS (2)
  1. PROPOXYPHENE. [Concomitant]
     Active Substance: PROPOXYPHENE
  2. YAZ [Suspect]
     Active Substance: DROSPIRENONE\ETHINYL ESTRADIOL
     Indication: CONTRACEPTION
     Dosage: UNK
     Dates: start: 2006, end: 200812

REACTIONS (10)
  - Cerebrovascular accident [None]
  - Limb discomfort [None]
  - Arthropathy [None]
  - Lacunar infarction [None]
  - Disease susceptibility [None]
  - Fall [None]
  - Muscular weakness [None]
  - Abdominal pain [None]
  - General physical health deterioration [None]
  - Injury [None]

NARRATIVE: CASE EVENT DATE: 20081211
